FAERS Safety Report 5137968-4 (Version None)
Quarter: 2006Q4

REPORT INFORMATION
  Report Type: 
  Country: None (occurrence: None)
  Receive Date: 20061030
  Receipt Date: 20060324
  Transmission Date: 20070319
  Serious: No
  Sender: FDA-Public Use
  Company Number: US-GLAXOSMITHKLINE-A0598960A

PATIENT
  Age: 55 Year
  Sex: Male

DRUGS (8)
  1. ADVAIR HFA [Suspect]
     Indication: ASTHMA
     Dosage: 1PUFF TWICE PER DAY
     Route: 055
     Dates: start: 20010101
  2. LOTREL [Concomitant]
  3. PRILOSEC [Concomitant]
  4. ACTOS [Concomitant]
  5. CELEBREX [Concomitant]
  6. LEVOXYL [Concomitant]
  7. ZYRTEC [Concomitant]
  8. ASTELIN [Concomitant]

REACTIONS (1)
  - DRUG INEFFECTIVE [None]
